FAERS Safety Report 8619118-2 (Version None)
Quarter: 2012Q3

REPORT INFORMATION
  Report Type: 
  Country: None (occurrence: None)
  Receive Date: 20120824
  Receipt Date: 20120822
  Transmission Date: 20120928
  Serious: Yes (Other)
  Sender: FDA-Public Use
  Company Number: PHEH2004US11591

PATIENT
  Sex: Female
  Weight: 80.272 kg

DRUGS (58)
  1. FLUTICASONE PROPIONATE [Concomitant]
  2. RADIATION THERAPY [Concomitant]
  3. ASCORBIC ACID [Concomitant]
  4. HYDROCODONE BITARTRATE [Concomitant]
  5. PREVACID [Concomitant]
     Dosage: 30 MG, QHS
     Route: 048
  6. AREDIA [Suspect]
     Indication: METASTASES TO BONE
     Dosage: 90 MG, UNK
     Dates: start: 20000421, end: 20020216
  7. CELEXA [Concomitant]
     Indication: DEPRESSION
     Dosage: 20 MG, QD
  8. FEMARA [Concomitant]
     Dosage: 2.5 MG, QD
     Dates: start: 20000915, end: 20030129
  9. HERCEPTIN [Concomitant]
     Dosage: 2 MG/KG, EVERY WEEK
  10. CIMETIDINE [Concomitant]
     Dates: start: 20000623
  11. HERCEPTIN [Concomitant]
  12. MINERALS NOS [Concomitant]
  13. METRONIDAZOLE [Concomitant]
  14. PROMETHAZINE [Concomitant]
  15. COUMADIN [Concomitant]
     Dosage: UNK UKN, QD
     Route: 048
     Dates: start: 20051019
  16. CHEMOTHERAPEUTICS [Concomitant]
  17. VITAMIN B COMPLEX CAP [Concomitant]
  18. TRAZODONE HYDROCHLORIDE [Concomitant]
  19. ACETAMINOPHEN AND HYDROCODONE BITARTRATE [Concomitant]
  20. DYAZIDE [Concomitant]
     Indication: OEDEMA
     Dosage: UNK UKN, QD
  21. CALCIUM W/VITAMIN D NOS [Concomitant]
  22. VICOPROFEN [Concomitant]
  23. ZOMETA [Suspect]
     Indication: METASTASES TO BONE
     Dosage: 4 MG, QMO
     Dates: start: 20010101
  24. POTASSIUM CHLORIDE (KV/24) [Concomitant]
     Dosage: 20 MEQ, BID
  25. HERCEPTIN [Concomitant]
     Dosage: 4 MG/KG, LOADING DOSE
     Dates: start: 19990801
  26. XANAX [Concomitant]
     Indication: DEPRESSION
  27. PREDNISONE TAB [Concomitant]
     Dosage: 5 MG, POST TAXOL INFUSION
  28. BENADRYL [Concomitant]
     Dates: start: 20000623
  29. VACCINE BREAST CANCER PROTOCOL [Concomitant]
  30. ZYBAN [Concomitant]
  31. LEVAQUIN [Concomitant]
  32. CYMBALTA [Concomitant]
  33. SIMVASTATIN [Concomitant]
  34. CYTOXAN [Concomitant]
  35. ZOMETA [Suspect]
     Dosage: 4 MG, QW
     Dates: start: 20030129
  36. OXYCONTIN [Concomitant]
     Indication: PAIN
     Dosage: 20 MG, BID
  37. TYLENOL W/ CODEINE [Concomitant]
     Indication: PAIN
  38. ALBUTEROL [Concomitant]
  39. BUPROPION HCL [Concomitant]
  40. ZOMETA [Suspect]
     Dosage: 4 MG, Q3W
     Dates: start: 20040225, end: 20050413
  41. LOTENSIN [Concomitant]
     Dosage: 20 MG, QD
  42. TAXOL [Concomitant]
     Indication: METASTASIS
     Dates: start: 20000421, end: 20000818
  43. LISINOPRIL [Concomitant]
  44. KEFLEX [Concomitant]
  45. CEPHALEXIN [Concomitant]
  46. WARFARIN SODIUM [Concomitant]
  47. FASLODEX [Concomitant]
     Dosage: 250 MG, UNK
     Route: 030
  48. COMPAZINE [Concomitant]
  49. LASIX [Concomitant]
     Dosage: 40 MG, BID
  50. TAXOTERE [Concomitant]
     Indication: BREAST CANCER
     Dosage: 75 MG/M2, UNK
     Route: 042
     Dates: start: 19990801, end: 20000818
  51. CELEBREX [Concomitant]
  52. DEXAMETHASONE [Concomitant]
  53. HEPARIN [Concomitant]
  54. ZOMETA [Suspect]
     Dosage: UNK UKN, QW3
     Dates: start: 20040801
  55. NAVELBINE [Concomitant]
     Dosage: 30MG/M2 UNKDAY1,8
     Dates: start: 20030129, end: 20040204
  56. CHLORHEXIDINE GLUCONATE [Concomitant]
  57. KYTRIL [Concomitant]
  58. ADRIAMYCIN PFS [Concomitant]

REACTIONS (88)
  - GINGIVAL DISORDER [None]
  - METASTASES TO LUNG [None]
  - BLOOD CREATININE INCREASED [None]
  - ROTATOR CUFF SYNDROME [None]
  - FAMILY STRESS [None]
  - OBESITY [None]
  - VOMITING [None]
  - OSTEOARTHRITIS [None]
  - KYPHOSIS [None]
  - UPPER RESPIRATORY TRACT INFECTION [None]
  - CARDIOTOXICITY [None]
  - PULMONARY HYPERTENSION [None]
  - DEVICE MALFUNCTION [None]
  - OSTEOPENIA [None]
  - LIVER DISORDER [None]
  - OROPHARYNGEAL PAIN [None]
  - PAIN IN JAW [None]
  - TRISMUS [None]
  - TOOTH DISORDER [None]
  - PATHOLOGICAL FRACTURE [None]
  - PLEURAL EFFUSION [None]
  - DYSPHAGIA [None]
  - DEPRESSED MOOD [None]
  - HEART RATE DECREASED [None]
  - CARDIOMEGALY [None]
  - VENTRICULAR HYPOKINESIA [None]
  - EJECTION FRACTION ABNORMAL [None]
  - GLOMERULAR FILTRATION RATE ABNORMAL [None]
  - GINGIVAL RECESSION [None]
  - HAEMORRHAGE [None]
  - METASTASES TO BONE [None]
  - LEFT ATRIAL DILATATION [None]
  - C-REACTIVE PROTEIN INCREASED [None]
  - COMPRESSION FRACTURE [None]
  - DYSPNOEA EXERTIONAL [None]
  - OSTEOMYELITIS [None]
  - SWELLING [None]
  - CAPILLARY LEAK SYNDROME [None]
  - RED BLOOD CELL SEDIMENTATION RATE INCREASED [None]
  - SINUS TACHYCARDIA [None]
  - DIARRHOEA [None]
  - SINUSITIS [None]
  - MITRAL VALVE INCOMPETENCE [None]
  - VITAMIN D DEFICIENCY [None]
  - TRICUSPID VALVE INCOMPETENCE [None]
  - FOREIGN BODY REACTION [None]
  - BONE DISORDER [None]
  - PRIMARY SEQUESTRUM [None]
  - INFECTION [None]
  - ANAEMIA [None]
  - BONE ABSCESS [None]
  - OSTEITIS DEFORMANS [None]
  - METASTASES TO BONE MARROW [None]
  - NEOPLASM MALIGNANT [None]
  - BURSITIS [None]
  - COMPUTERISED TOMOGRAM CORONARY ARTERY ABNORMAL [None]
  - FIBROSIS [None]
  - ERYTHEMA [None]
  - HYPERPLASIA [None]
  - INFLAMMATION [None]
  - BONE LESION [None]
  - GASTROOESOPHAGEAL REFLUX DISEASE [None]
  - HEPATIC CYST [None]
  - RENAL FAILURE CHRONIC [None]
  - HYPERCHOLESTEROLAEMIA [None]
  - PERICARDIAL EFFUSION [None]
  - PULMONARY VALVE INCOMPETENCE [None]
  - OEDEMA PERIPHERAL [None]
  - PAIN IN EXTREMITY [None]
  - OSTEONECROSIS OF JAW [None]
  - ANXIETY [None]
  - ORAL DISORDER [None]
  - FALL [None]
  - EXOSTOSIS [None]
  - ATELECTASIS [None]
  - HAEMORRHOIDS [None]
  - BACK PAIN [None]
  - PAIN [None]
  - BONE SWELLING [None]
  - IMPAIRED HEALING [None]
  - METASTASES TO SPINE [None]
  - NAUSEA [None]
  - AORTIC ARTERIOSCLEROSIS [None]
  - IMPLANT SITE THROMBOSIS [None]
  - INTERVERTEBRAL DISC DEGENERATION [None]
  - DIASTOLIC DYSFUNCTION [None]
  - GLIOSIS [None]
  - METASTASES TO PLEURA [None]
